FAERS Safety Report 7151252-9 (Version None)
Quarter: 2010Q4

REPORT INFORMATION
  Report Type: 
  Country: None (occurrence: None)
  Receive Date: 20101210
  Receipt Date: 20101207
  Transmission Date: 20110411
  Serious: Yes (Hospitalization)
  Sender: FDA-Public Use
  Company Number: EC-B.I. PHARMACEUTICALS,INC./RIDGEFIELD-2010-RA-00470RA

PATIENT
  Age: 36 Year
  Sex: Male

DRUGS (4)
  1. DABIGATRAN ETEXILATE [Suspect]
     Indication: THROMBOSIS PROPHYLAXIS
     Dosage: 110 MG
     Route: 048
  2. CEFALEXINA [Concomitant]
     Indication: INFECTION PROPHYLAXIS
     Dosage: 1500 MG
     Route: 048
  3. PARACETAMOL [Concomitant]
     Indication: POSTOPERATIVE ANALGESIA
     Dosage: 1 G
     Route: 048
  4. MOBIC [Concomitant]
     Indication: POSTOPERATIVE ANALGESIA
     Dosage: 15 MG
     Route: 048

REACTIONS (2)
  - DEEP VEIN THROMBOSIS [None]
  - HAEMARTHROSIS [None]
